FAERS Safety Report 18017851 (Version 1)
Quarter: 2020Q3

REPORT INFORMATION
  Report Type: Spontaneous
  Country: NI (occurrence: NI)
  Receive Date: 20200713
  Receipt Date: 20200713
  Transmission Date: 20201103
  Serious: Yes (Death)
  Sender: FDA-Public Use
  Company Number: NI-ROCHE-2639428

PATIENT
  Age: 63 Year
  Sex: Male
  Weight: 80 kg

DRUGS (2)
  1. ACTEMRA [Suspect]
     Active Substance: TOCILIZUMAB
     Indication: COVID-19
     Dosage: 4 UNITS ? ONE SINGLE DOSE.
     Route: 042
     Dates: start: 20200615, end: 20200615
  2. ACTEMRA [Suspect]
     Active Substance: TOCILIZUMAB
     Dosage: 4 UNITS ? ONE SINGLE DOSE.
     Route: 042
     Dates: start: 20200617, end: 20200617

REACTIONS (3)
  - Acute respiratory failure [Fatal]
  - Product use in unapproved indication [Unknown]
  - Off label use [Unknown]
